FAERS Safety Report 11911440 (Version 1)
Quarter: 2016Q1

REPORT INFORMATION
  Report Type: Spontaneous
  Country: GB (occurrence: GB)
  Receive Date: 20160112
  Receipt Date: 20160112
  Transmission Date: 20160526
  Serious: Yes (Other)
  Sender: FDA-Public Use
  Company Number: GB-PFIZER INC-2016008091

PATIENT
  Age: 44 Year
  Sex: Female
  Weight: 126 kg

DRUGS (8)
  1. TOPIRAMATE. [Concomitant]
     Active Substance: TOPIRAMATE
     Dosage: 1 DF, 1X/DAY AT NIGHT
     Dates: start: 20150521
  2. BECLOMETASONE [Concomitant]
     Active Substance: BECLOMETHASONE DIPROPIONATE
     Dosage: 2 DF, 2X/DAY ONE IN EACH NOSTRIL MORNING AND EVENING.
     Route: 045
     Dates: start: 20151217
  3. LEVOTHYROXINE. [Concomitant]
     Active Substance: LEVOTHYROXINE
     Dosage: 1 DF, 1X/DAY EACH MORNING BEFORE BREAKFAST.
     Dates: start: 20150521
  4. MOMETASONE [Concomitant]
     Active Substance: MOMETASONE
     Dosage: 2 DF, 1X/DAY ON SPRAY IN BOTH NOSTRILS.
     Route: 045
     Dates: start: 20150521
  5. QUININE [Concomitant]
     Active Substance: QUININE
     Dosage: 1 DF, 1X/DAY
     Dates: start: 20151013
  6. ORLISTAT [Concomitant]
     Active Substance: ORLISTAT
     Dosage: 1 DF, 3X/DAY
     Dates: start: 20151105, end: 20151203
  7. DOXYCYCLINE MONOHYDRATE [Suspect]
     Active Substance: DOXYCYCLINE
     Dosage: UNK
     Dates: start: 20151231
  8. SODIUM VALPROATE [Concomitant]
     Active Substance: VALPROATE SODIUM
     Dosage: 1 DF, 3X/DAY
     Dates: start: 20150521

REACTIONS (2)
  - Vision blurred [Recovered/Resolved]
  - Visual impairment [Recovered/Resolved]

NARRATIVE: CASE EVENT DATE: 20151231
